FAERS Safety Report 12389867 (Version 25)
Quarter: 2018Q3

REPORT INFORMATION
  Report Type: Report from Study
  Country: US (occurrence: US)
  Receive Date: 20160520
  Receipt Date: 20180813
  Transmission Date: 20181010
  Serious: Yes (Hospitalization, Other)
  Sender: FDA-Public Use
  Company Number: US-ACTELION-A-NJ2016-136277

PATIENT
  Age: 72 Year
  Sex: Male
  Weight: 55.78 kg

DRUGS (16)
  1. VELETRI [Suspect]
     Active Substance: EPOPROSTENOL
     Dosage: 2 NG/KG, PER MIN
     Route: 042
     Dates: end: 20170815
  2. OXYGEN. [Concomitant]
     Active Substance: OXYGEN
  3. ORENITRAM [Suspect]
     Active Substance: TREPROSTINIL
     Dosage: 5 MG, TID
     Route: 048
  4. DILTIAZEM. [Concomitant]
     Active Substance: DILTIAZEM
  5. ORENITRAM [Suspect]
     Active Substance: TREPROSTINIL
     Dosage: 3.5 MG, TID
     Route: 048
  6. ORENITRAM [Suspect]
     Active Substance: TREPROSTINIL
     Dosage: 4.0 MG, TID
     Route: 048
  7. XARELTO [Concomitant]
     Active Substance: RIVAROXABAN
  8. VELETRI [Suspect]
     Active Substance: EPOPROSTENOL
     Dosage: 5 NG/KG, PER MIN
     Route: 042
     Dates: start: 20160418
  9. ADEMPAS [Concomitant]
     Active Substance: RIOCIGUAT
     Indication: PRODUCT USED FOR UNKNOWN INDICATION
     Dosage: 2.5 MG, UNK
     Route: 048
  10. WARFARIN [Concomitant]
     Active Substance: WARFARIN
  11. VELETRI [Suspect]
     Active Substance: EPOPROSTENOL
     Indication: PULMONARY ARTERIAL HYPERTENSION
     Dosage: 20 NG/KG, PER MIN
     Route: 042
  12. VELETRI [Suspect]
     Active Substance: EPOPROSTENOL
     Dosage: 6 NG/KG, PER MIN
     Route: 042
  13. VELETRI [Suspect]
     Active Substance: EPOPROSTENOL
     Dosage: 15 NG/KG, PER MIN
     Route: 042
     Dates: end: 20170815
  14. ORENITRAM [Suspect]
     Active Substance: TREPROSTINIL
     Indication: PULMONARY ARTERIAL HYPERTENSION
     Dosage: 2 MG, TID
     Route: 048
     Dates: start: 20170630
  15. CARDIZEM [Concomitant]
     Active Substance: DILTIAZEM HYDROCHLORIDE
  16. COUMADIN [Concomitant]
     Active Substance: WARFARIN SODIUM

REACTIONS (28)
  - Cerebrovascular accident [Unknown]
  - Weight decreased [Unknown]
  - Malaise [Unknown]
  - Pulmonary arterial hypertension [Unknown]
  - Nausea [Unknown]
  - Seborrhoea [Unknown]
  - Diarrhoea [Unknown]
  - Disorientation [Unknown]
  - Weight increased [Unknown]
  - Dysgeusia [Unknown]
  - Inguinal hernia [Unknown]
  - Transient ischaemic attack [Unknown]
  - Abdominal discomfort [Unknown]
  - Decreased appetite [Unknown]
  - Constipation [Unknown]
  - Erectile dysfunction [Unknown]
  - Oxygen saturation decreased [Unknown]
  - Hypotension [Unknown]
  - Dyspepsia [Unknown]
  - Sepsis [Unknown]
  - Dyspnoea [Unknown]
  - Gastrointestinal motility disorder [Unknown]
  - Disease progression [Unknown]
  - Chills [Unknown]
  - Dizziness [Unknown]
  - Hypoxia [Unknown]
  - Frequent bowel movements [Unknown]
  - Dyspnoea exertional [Unknown]

NARRATIVE: CASE EVENT DATE: 201604
